FAERS Safety Report 25129478 (Version 1)
Quarter: 2025Q1

REPORT INFORMATION
  Report Type: Spontaneous
  Country: US (occurrence: US)
  Receive Date: 20250327
  Receipt Date: 20250327
  Transmission Date: 20250409
  Serious: No
  Sender: PFIZER
  Company Number: US-PFIZER INC-202500065466

PATIENT
  Age: 70 Year
  Sex: Female
  Weight: 83.91 kg

DRUGS (2)
  1. METHYLPREDNISOLONE [Suspect]
     Active Substance: METHYLPREDNISOLONE
     Indication: Inflammation
     Route: 048
     Dates: start: 20250307, end: 20250312
  2. METHYLPREDNISOLONE [Suspect]
     Active Substance: METHYLPREDNISOLONE
     Indication: Peripheral swelling

REACTIONS (4)
  - Feeling abnormal [Unknown]
  - Visual impairment [Unknown]
  - Headache [Unknown]
  - Amnesia [Not Recovered/Not Resolved]
